FAERS Safety Report 7548096-2 (Version None)
Quarter: 2011Q2

REPORT INFORMATION
  Report Type: 
  Country: None (occurrence: None)
  Receive Date: 20110615
  Receipt Date: 20110523
  Transmission Date: 20111010
  Serious: Yes (Hospitalization)
  Sender: FDA-Public Use
  Company Number: US-BAYER-2010-009242

PATIENT
  Sex: Female
  Weight: 61 kg

DRUGS (11)
  1. LUTERA-28 [Concomitant]
     Dosage: 1 DF, QD
     Route: 048
  2. TIZANIDINE HCL [Concomitant]
     Dosage: 2 MG, PRN
     Route: 048
  3. EFFEXOR XR [Concomitant]
     Dosage: 37.5 MG, BID
     Route: 048
  4. IBUPROFEN [Concomitant]
     Indication: MIGRAINE
     Dosage: 800 MG, TID
     Route: 048
     Dates: start: 20070101, end: 20090101
  5. PROTONIX [Concomitant]
     Dosage: 20 MG, QD
     Route: 048
  6. TRAZODONE HCL [Concomitant]
     Dosage: 100 MG, QD
     Route: 048
  7. LYRICA [Concomitant]
     Route: 048
  8. YASMIN [Suspect]
     Indication: PRODUCT USED FOR UNKNOWN INDICATION
     Dosage: UNK
     Dates: start: 20040101, end: 20080101
  9. YAZ [Suspect]
     Dosage: UNK
     Dates: start: 20040101, end: 20080101
  10. VENLAFAXINE [Concomitant]
     Dosage: 37.5 MG, QD
     Route: 048
  11. ULTRAM SR [Concomitant]
     Dosage: 100 MG, QD
     Route: 048

REACTIONS (3)
  - GALLBLADDER NON-FUNCTIONING [None]
  - PAIN [None]
  - CHOLECYSTITIS CHRONIC [None]
